FAERS Safety Report 15572283 (Version 1)
Quarter: 2018Q4

REPORT INFORMATION
  Report Type: Report from Study
  Country: AR (occurrence: AR)
  Receive Date: 20181031
  Receipt Date: 20181031
  Transmission Date: 20190205
  Serious: Yes (Hospitalization, Other)
  Sender: FDA-Public Use
  Company Number: PHHY2018AR142801

PATIENT
  Sex: Male

DRUGS (1)
  1. ENTRESTO [Suspect]
     Active Substance: SACUBITRIL\VALSARTAN
     Indication: CARDIAC FAILURE
     Dosage: 50 MG, Q12H
     Route: 065
     Dates: start: 201807

REACTIONS (7)
  - Fatigue [Recovering/Resolving]
  - Malnutrition [Not Recovered/Not Resolved]
  - Ejection fraction decreased [Unknown]
  - Pneumonia [Recovering/Resolving]
  - Cardiac disorder [Not Recovered/Not Resolved]
  - Arrhythmia [Recovering/Resolving]
  - Hypotension [Not Recovered/Not Resolved]
